FAERS Safety Report 4548755-X (Version None)
Quarter: 2005Q1

REPORT INFORMATION
  Report Type: 
  Country: None (occurrence: None)
  Receive Date: 20050107
  Receipt Date: 20050107
  Transmission Date: 20050727
  Serious: Yes (Other)
  Sender: FDA-Public Use
  Company Number: None

PATIENT
  Sex: Female
  Weight: 58.9676 kg

DRUGS (3)
  1. TOPAMAX [Suspect]
     Indication: GRAND MAL CONVULSION
     Dosage: DAILY
     Dates: start: 20041116, end: 20041123
  2. EXELON [Concomitant]
  3. DILANTIN [Concomitant]

REACTIONS (7)
  - COGNITIVE DISORDER [None]
  - HALLUCINATION, AUDITORY [None]
  - HALLUCINATION, VISUAL [None]
  - HYPERVIGILANCE [None]
  - INSOMNIA [None]
  - PSYCHIATRIC SYMPTOM [None]
  - RESTLESSNESS [None]
